FAERS Safety Report 8390980-4 (Version None)
Quarter: 2012Q2

REPORT INFORMATION
  Report Type: 
  Country: None (occurrence: None)
  Receive Date: 20120529
  Receipt Date: 20120521
  Transmission Date: 20120825
  Serious: Yes (Hospitalization, Other)
  Sender: FDA-Public Use
  Company Number: US-BAYER-2012-038125

PATIENT
  Age: 18 Year
  Sex: Female
  Weight: 56.81 kg

DRUGS (6)
  1. DOPAMINE HCL [Concomitant]
     Indication: HYPOTENSION
  2. CEFTRIAXON [Concomitant]
     Dosage: UNK
     Dates: start: 20080311
  3. YASMIN [Suspect]
     Dosage: UNK
     Dates: start: 20061101, end: 20080301
  4. AZITHROMYCIN [Concomitant]
     Dosage: UNK
     Route: 048
     Dates: start: 20080307
  5. TAMIFLU [Concomitant]
     Dosage: UNK
     Dates: start: 20080306
  6. OSELTAMIVIR [Concomitant]
     Dosage: UNK
     Route: 048
     Dates: start: 20080306

REACTIONS (7)
  - EMOTIONAL DISTRESS [None]
  - FEAR OF DEATH [None]
  - INJURY [None]
  - LEMIERRE SYNDROME [None]
  - DEEP VEIN THROMBOSIS [None]
  - DEPRESSION [None]
  - NERVOUSNESS [None]
